FAERS Safety Report 11836277 (Version 1)
Quarter: 2015Q4

REPORT INFORMATION
  Report Type: Spontaneous
  Country: US (occurrence: US)
  Receive Date: 20151215
  Receipt Date: 20151215
  Transmission Date: 20160305
  Serious: No
  Sender: FDA-Public Use
  Company Number: US-TARO-2015TAR00063

PATIENT
  Sex: Female

DRUGS (1)
  1. CLOBETASOL PROPIONATE TOPICAL SOLUTION USP 0.05% [Suspect]
     Active Substance: CLOBETASOL PROPIONATE
     Dosage: UNK, ONCE
     Route: 045
     Dates: start: 20150118, end: 20150118

REACTIONS (4)
  - Incorrect route of drug administration [Recovered/Resolved]
  - Wrong drug administered [Recovered/Resolved]
  - Back pain [Unknown]
  - Vomiting [Unknown]

NARRATIVE: CASE EVENT DATE: 20150118
